FAERS Safety Report 6250325-2 (Version None)
Quarter: 2009Q2

REPORT INFORMATION
  Report Type: 
  Country: None (occurrence: None)
  Receive Date: 20090626
  Receipt Date: 20090626
  Transmission Date: 20091009
  Serious: Yes (Other)
  Sender: FDA-Public Use
  Company Number: None

PATIENT
  Age: 59 Year
  Sex: Male
  Weight: 81.6475 kg

DRUGS (1)
  1. ZICAM OTC NASAL SWABS MATRIX [Suspect]
     Indication: NASAL CONGESTION
     Dosage: ONE SWAB EVERY 4 HRS. AS NE NASAL FOR 2 - 3 YEARS OFF + ON
     Route: 045

REACTIONS (2)
  - AGEUSIA [None]
  - ANOSMIA [None]
